FAERS Safety Report 8473749-1 (Version None)
Quarter: 2012Q2

REPORT INFORMATION
  Report Type: 
  Country: None (occurrence: None)
  Receive Date: 20120628
  Receipt Date: 20111109
  Transmission Date: 20120825
  Serious: Yes (Other)
  Sender: FDA-Public Use
  Company Number: US-MYLANLABS-2011S1021612

PATIENT
  Age: 42 Year
  Sex: Male

DRUGS (5)
  1. ANTI-ASTHMATICS [Concomitant]
     Dosage: RESPITROL
  2. COGENTIN [Concomitant]
  3. CLOZAPINE [Suspect]
     Indication: SCHIZOPHRENIA
     Route: 048
     Dates: start: 20111003, end: 20111013
  4. ZOCOR [Concomitant]
  5. DEPAKOTE [Concomitant]

REACTIONS (1)
  - GRANULOCYTOPENIA [None]
